FAERS Safety Report 7531227-8 (Version None)
Quarter: 2011Q2

REPORT INFORMATION
  Report Type: 
  Country: None (occurrence: None)
  Receive Date: 20110531
  Receipt Date: 20110517
  Transmission Date: 20111010
  Serious: Yes (Hospitalization)
  Sender: FDA-Public Use
  Company Number: WAES 1105USA02670

PATIENT
  Age: 33 Year
  Sex: Female

DRUGS (5)
  1. LOPINAVIR/RITONAVIR [Suspect]
     Dates: start: 20110325
  2. GLYBURIDE [Suspect]
     Dates: start: 20110322, end: 20110513
  3. TAB RALTEGRAVIR POTASSIUM [Suspect]
     Indication: URTICARIA
     Dates: start: 20110325
  4. INSULIN [Concomitant]
  5. SULFAMETHOXAZOLE AND TRIMETHOPRIM [Concomitant]

REACTIONS (3)
  - DIABETIC KETOACIDOSIS [None]
  - PANCREATITIS [None]
  - COUGH [None]
